FAERS Safety Report 7490988-7 (Version None)
Quarter: 2011Q2

REPORT INFORMATION
  Report Type: 
  Country: None (occurrence: None)
  Receive Date: 20110519
  Receipt Date: 20110506
  Transmission Date: 20111010
  Serious: Yes (Hospitalization)
  Sender: FDA-Public Use
  Company Number: CA-ACTELION-A-US2011-48433

PATIENT

DRUGS (14)
  1. TRACLEER [Suspect]
     Indication: PULMONARY ARTERIAL HYPERTENSION
     Dosage: 125 MG, BID
     Route: 048
     Dates: start: 20110418, end: 20110420
  2. NOVO-DOCUSATE [Concomitant]
  3. LANSOPRAZOLE [Concomitant]
  4. FLURAZEPAM [Concomitant]
  5. PREMARIN [Concomitant]
  6. SENNOSIDE [Concomitant]
  7. APO-METHOPRAZINE [Concomitant]
  8. CARBOCAL [Concomitant]
  9. LORAZEPAM [Concomitant]
  10. THELIN [Concomitant]
     Indication: PULMONARY ARTERIAL HYPERTENSION
     Dosage: UNK
     Dates: start: 20080901, end: 20110418
  11. QVAR 40 [Concomitant]
  12. AVAPRO [Concomitant]
     Dosage: UNK
  13. VENTOLIN [Concomitant]
  14. METFORMIN HCL [Concomitant]

REACTIONS (4)
  - PULMONARY EMBOLISM [None]
  - CONFUSIONAL STATE [None]
  - FATIGUE [None]
  - PHLEBITIS [None]
